FAERS Safety Report 10580894 (Version 1)
Quarter: 2014Q4

REPORT INFORMATION
  Report Type: Spontaneous
  Country: FR (occurrence: None)
  Receive Date: 20141110
  Receipt Date: 20141110
  Transmission Date: 20150529
  Serious: Yes (Other)
  Sender: FDA-Public Use
  Company Number: 2014277271

PATIENT
  Age: 21 Year
  Sex: Female
  Weight: 60 kg

DRUGS (1)
  1. FRAGMINE (DALTERPARIN SODIUM) SOLUTION FOR INJECTION [Suspect]
     Active Substance: DALTEPARIN SODIUM
     Indication: PRODUCT USED FOR UNKNOWN INDICATION
     Dosage: UNK

REACTIONS (6)
  - Needle issue [None]
  - Product contamination with body fluid [None]
  - Product quality issue [None]
  - Injury [None]
  - Occupational exposure to product [None]
  - Injury associated with device [None]

NARRATIVE: CASE EVENT DATE: 20141008
